FAERS Safety Report 12667947 (Version 1)
Quarter: 2016Q3

REPORT INFORMATION
  Report Type: Spontaneous
  Country: US (occurrence: US)
  Receive Date: 20160819
  Receipt Date: 20160819
  Transmission Date: 20161109
  Serious: Yes (Hospitalization, Other)
  Sender: FDA-Public Use
  Company Number: US-PFIZER INC-2015387725

PATIENT
  Age: 57 Year
  Sex: Male

DRUGS (2)
  1. DEPO-TESTOSTERONE [Suspect]
     Active Substance: TESTOSTERONE CYPIONATE
     Indication: HORMONE REPLACEMENT THERAPY
     Dosage: UNK
     Dates: start: 2010, end: 2015
  2. ANDROGEL [Suspect]
     Active Substance: TESTOSTERONE
     Indication: HORMONE REPLACEMENT THERAPY
     Dosage: UNK, DAILY
     Dates: start: 2011, end: 2012

REACTIONS (8)
  - Cardiac failure congestive [Unknown]
  - Fatigue [Not Recovered/Not Resolved]
  - Deep vein thrombosis [Unknown]
  - Depression [Unknown]
  - Cardiac disorder [Unknown]
  - Asthenia [Not Recovered/Not Resolved]
  - Angina pectoris [Unknown]
  - Myocardial infarction [Unknown]

NARRATIVE: CASE EVENT DATE: 201002
